FAERS Safety Report 12912913 (Version 3)
Quarter: 2016Q4

REPORT INFORMATION
  Report Type: Spontaneous
  Country: JP (occurrence: JP)
  Receive Date: 20161104
  Receipt Date: 20161219
  Transmission Date: 20170207
  Serious: Yes (Hospitalization)
  Sender: FDA-Public Use
  Company Number: JP-ABBVIE-16P-087-1768491-00

PATIENT
  Age: 25 Year
  Sex: Male
  Weight: 57 kg

DRUGS (10)
  1. NEORAL [Suspect]
     Active Substance: CYCLOSPORINE
     Indication: DERMATOMYOSITIS
     Route: 048
     Dates: start: 20070814, end: 20080515
  2. BREDININ [Suspect]
     Active Substance: MIZORIBINE
     Indication: DERMATOMYOSITIS
     Route: 048
  3. RITUXIMAB [Concomitant]
     Active Substance: RITUXIMAB
     Indication: DERMATOMYOSITIS
  4. PREDNISOLONE. [Concomitant]
     Active Substance: PREDNISOLONE
     Indication: PRODUCT USED FOR UNKNOWN INDICATION
     Route: 048
     Dates: start: 20140731
  5. CELLCEPT [Suspect]
     Active Substance: MYCOPHENOLATE MOFETIL\MYCOPHENOLATE MOFETIL HYDROCHLORIDE
     Indication: DERMATOMYOSITIS
     Route: 048
     Dates: start: 20070501, end: 20070811
  6. PROGRAF [Suspect]
     Active Substance: TACROLIMUS\TACROLIMUS ANHYDROUS
     Indication: DERMATOMYOSITIS
     Route: 048
     Dates: start: 20070601, end: 20070811
  7. IMURAN [Suspect]
     Active Substance: AZATHIOPRINE
     Indication: PRODUCT USED FOR UNKNOWN INDICATION
     Route: 065
  8. ADALIMUMAB [Suspect]
     Active Substance: ADALIMUMAB
     Indication: JUVENILE IDIOPATHIC ARTHRITIS
  9. METHOTREXATE. [Concomitant]
     Active Substance: METHOTREXATE
     Indication: DERMATOMYOSITIS
     Dosage: 12 MG/WEEK
     Route: 048
     Dates: start: 20120607, end: 20151010
  10. ADALIMUMAB [Suspect]
     Active Substance: ADALIMUMAB
     Indication: DERMATOMYOSITIS
     Route: 058
     Dates: start: 20130919, end: 201510

REACTIONS (2)
  - Smooth muscle cell neoplasm [Recovering/Resolving]
  - Epstein-Barr virus infection [Recovering/Resolving]

NARRATIVE: CASE EVENT DATE: 20150806
